FAERS Safety Report 24040635 (Version 1)
Quarter: 2024Q3

REPORT INFORMATION
  Report Type: Spontaneous
  Country: NO (occurrence: NO)
  Receive Date: 20240702
  Receipt Date: 20240702
  Transmission Date: 20241017
  Serious: Yes (Death, Other)
  Sender: BRISTOL MYERS SQUIBB
  Company Number: None

PATIENT
  Age: 85 Year
  Sex: Male

DRUGS (1)
  1. ELIQUIS [Suspect]
     Active Substance: APIXABAN
     Indication: Atrial fibrillation
     Dosage: THERAPY START DATE IS REPORTED UNKNOWN. DISCONTINUATED UPON HOSPITALIZATION (NIGHT OF 31/MAY/2024)
     Route: 048
     Dates: end: 20240531

REACTIONS (5)
  - Depressed level of consciousness [Fatal]
  - Paresis [Fatal]
  - Subcortical stroke [Fatal]
  - Cerebral haemorrhage [Fatal]
  - Aphasia [Fatal]

NARRATIVE: CASE EVENT DATE: 20240531
